FAERS Safety Report 9726363 (Version 2)
Quarter: 2014Q1

REPORT INFORMATION
  Report Type: Spontaneous
  Country: BE (occurrence: BE)
  Receive Date: 20131203
  Receipt Date: 20140108
  Transmission Date: 20141002
  Serious: No
  Sender: FDA-Public Use
  Company Number: BE-GLAXOSMITHKLINE-B0949765A

PATIENT
  Age: 25 Year
  Sex: Female
  Weight: 57 kg

DRUGS (9)
  1. BENLYSTA [Suspect]
     Indication: SYSTEMIC LUPUS ERYTHEMATOSUS
     Dosage: 670MG PER DAY
     Route: 065
     Dates: start: 20131118, end: 20131118
  2. MEDROL [Concomitant]
     Indication: SYSTEMIC LUPUS ERYTHEMATOSUS
     Dosage: 32MG PER DAY
     Route: 048
     Dates: start: 2011
  3. CALCIUM + COLECALCIFEROL [Concomitant]
     Indication: OSTEOPOROSIS PROPHYLAXIS
     Route: 048
     Dates: start: 2011
  4. CELLCEPT [Concomitant]
     Indication: SYSTEMIC LUPUS ERYTHEMATOSUS
     Dosage: 2G PER DAY
     Route: 048
     Dates: start: 20130901
  5. VOLIBRIS [Concomitant]
     Indication: PULMONARY ARTERIAL HYPERTENSION
     Dosage: 10MG PER DAY
     Route: 048
     Dates: start: 201305
  6. ADALAT [Concomitant]
     Indication: SYSTEMIC LUPUS ERYTHEMATOSUS
     Dosage: 30MG PER DAY
     Route: 048
     Dates: start: 2011
  7. ALENDRONATE [Concomitant]
     Indication: OSTEOPOROSIS PROPHYLAXIS
     Dosage: 70MG WEEKLY
     Route: 048
     Dates: start: 2011
  8. CYPROTERONE, ETHINYLESTRADIOL [Concomitant]
     Indication: CONTRACEPTION
     Route: 048
     Dates: start: 2012
  9. PLAQUENIL [Concomitant]
     Indication: SYSTEMIC LUPUS ERYTHEMATOSUS
     Dosage: 400MG PER DAY
     Dates: start: 201212

REACTIONS (3)
  - Hypersensitivity [Recovered/Resolved]
  - Dyspnoea [Recovered/Resolved]
  - Malaise [Recovered/Resolved]
